FAERS Safety Report 18718639 (Version 3)
Quarter: 2021Q1

REPORT INFORMATION
  Report Type: Spontaneous
  Country: DE (occurrence: DE)
  Receive Date: 20210108
  Receipt Date: 20210326
  Transmission Date: 20210419
  Serious: Yes (Death, Hospitalization, Other)
  Sender: FDA-Public Use
  Company Number: NVSC2021DE003158

PATIENT
  Age: 47 Year
  Sex: Male

DRUGS (3)
  1. KYMRIAH [Suspect]
     Active Substance: TISAGENLECLEUCEL
     Indication: DIFFUSE LARGE B-CELL LYMPHOMA
     Dosage: 1.5X108 T?CELLS
     Route: 042
     Dates: start: 20200814
  2. FILGRASTIM [Concomitant]
     Active Substance: FILGRASTIM
     Indication: PRODUCT USED FOR UNKNOWN INDICATION
     Dosage: 30 UG
     Route: 058
  3. REVOLADE [Concomitant]
     Active Substance: ELTROMBOPAG OLAMINE
     Indication: IMMUNE THROMBOCYTOPENIA
     Dosage: UNK UNK, Q3W (3X PER WEEK)
     Route: 065

REACTIONS (9)
  - Pyrexia [Unknown]
  - Liver disorder [Unknown]
  - Cytokine release syndrome [Unknown]
  - Tachycardia [Unknown]
  - Cytomegalovirus infection [Unknown]
  - Septic shock [Fatal]
  - Acute kidney injury [Unknown]
  - Haemophagocytic lymphohistiocytosis [Fatal]
  - Subdural haematoma [Unknown]

NARRATIVE: CASE EVENT DATE: 20200818
